FAERS Safety Report 10220984 (Version 3)
Quarter: 2014Q4

REPORT INFORMATION
  Report Type: Spontaneous
  Country: JP (occurrence: JP)
  Receive Date: 20140606
  Receipt Date: 20141010
  Transmission Date: 20150528
  Serious: Yes (Other)
  Sender: FDA-Public Use
  Company Number: JP-JNJFOC-20140519073

PATIENT
  Age: 42 Year
  Sex: Male
  Weight: 61 kg

DRUGS (7)
  1. ERIMIN [Concomitant]
     Active Substance: NIMETAZEPAM
     Indication: PANIC DISORDER
     Route: 048
     Dates: start: 201001
  2. ROHYPNOL [Concomitant]
     Active Substance: FLUNITRAZEPAM
     Indication: PANIC DISORDER
     Route: 065
     Dates: start: 20110317
  3. DORAL [Concomitant]
     Active Substance: QUAZEPAM
     Indication: PANIC DISORDER
     Route: 048
     Dates: start: 20120823
  4. EDURANT [Suspect]
     Active Substance: RILPIVIRINE HYDROCHLORIDE
     Indication: HIV INFECTION
     Route: 048
     Dates: start: 20120823, end: 20120828
  5. ISENTRESS [Concomitant]
     Active Substance: RALTEGRAVIR POTASSIUM
     Indication: HIV INFECTION
     Route: 048
     Dates: start: 20120823
  6. MEILAX [Concomitant]
     Active Substance: ETHYL LOFLAZEPATE
     Indication: PANIC DISORDER
     Route: 048
  7. EMTRIVA [Concomitant]
     Active Substance: EMTRICITABINE
     Indication: HIV INFECTION
     Route: 048
     Dates: start: 20120823

REACTIONS (1)
  - Headache [Recovered/Resolved]

NARRATIVE: CASE EVENT DATE: 20120824
